FAERS Safety Report 6122571-X (Version None)
Quarter: 2009Q1

REPORT INFORMATION
  Report Type: 
  Country: None (occurrence: None)
  Receive Date: 20090318
  Receipt Date: 20090316
  Transmission Date: 20090719
  Serious: Yes (Death)
  Sender: FDA-Public Use
  Company Number: US-BRISTOL-MYERS SQUIBB COMPANY-14545560

PATIENT
  Age: 93 Year
  Sex: Male
  Weight: 63 kg

DRUGS (3)
  1. COUMADIN [Suspect]
     Indication: CARDIAC FAILURE CONGESTIVE
  2. LASIX [Concomitant]
  3. PREDNISONE [Concomitant]

REACTIONS (1)
  - DEATH [None]
